FAERS Safety Report 10442557 (Version 1)
Quarter: 2014Q3

REPORT INFORMATION
  Report Type: Spontaneous
  Country: US (occurrence: US)
  Receive Date: 20140909
  Receipt Date: 20140909
  Transmission Date: 20150326
  Serious: No
  Sender: FDA-Public Use
  Company Number: US-TEVA-498251USA

PATIENT
  Sex: Female

DRUGS (1)
  1. QNASL [Suspect]
     Active Substance: BECLOMETHASONE DIPROPIONATE
     Route: 065

REACTIONS (4)
  - Hypersensitivity [Unknown]
  - Drug ineffective [Unknown]
  - Nasal congestion [Unknown]
  - Nasal discomfort [Unknown]
